FAERS Safety Report 5011095-9 (Version None)
Quarter: 2006Q2

REPORT INFORMATION
  Report Type: 
  Country: None (occurrence: None)
  Receive Date: 20060523
  Receipt Date: 20060523
  Transmission Date: 20061013
  Serious: No
  Sender: FDA-Public Use
  Company Number: None

PATIENT
  Age: 77 Year
  Sex: Female

DRUGS (3)
  1. HYDROMORPHONE HCL [Suspect]
     Indication: PAIN
     Dates: start: 20050821
  2. FENTANYL [Suspect]
     Dates: start: 20050821
  3. PROMETHAZINE [Suspect]
     Dates: start: 20050821

REACTIONS (4)
  - BACK PAIN [None]
  - OXYGEN SATURATION DECREASED [None]
  - PNEUMONIA [None]
  - RESPIRATORY DEPRESSION [None]
